FAERS Safety Report 9841334 (Version 2)
Quarter: 2014Q1

REPORT INFORMATION
  Report Type: Spontaneous
  Country: US (occurrence: US)
  Receive Date: 20140124
  Receipt Date: 20140228
  Transmission Date: 20141002
  Serious: Yes (Hospitalization)
  Sender: FDA-Public Use
  Company Number: US-009507513-1401USA010417

PATIENT
  Age: 55 Year
  Sex: Female
  Weight: 93.88 kg

DRUGS (9)
  1. JANUMET [Suspect]
     Indication: DIABETES MELLITUS
     Dosage: UNK
     Route: 048
  2. AMITRIPTYLINE HYDROCHLORIDE [Suspect]
     Dosage: 10 MG, QD
     Route: 048
  3. LYRICA [Suspect]
     Indication: FIBROMYALGIA
     Dosage: UNK, TID
     Route: 048
     Dates: start: 2009, end: 201311
  4. ACCURETIC [Suspect]
     Indication: HYPERTENSION
     Dosage: UNK
  5. METOPROLOL [Suspect]
     Indication: HYPERTENSION
     Dosage: UNK
  6. CRESTOR [Concomitant]
     Indication: BLOOD CHOLESTEROL INCREASED
     Dosage: UNK
  7. CYMBALTA [Concomitant]
     Dosage: 30 MG IN THE MORNING AND 60 MG AT NIGHT
  8. MOTRIN [Suspect]
     Indication: PAIN
     Dosage: UNK
     Dates: start: 201312
  9. ROSUVASTATIN CALCIUM [Concomitant]
     Indication: BLOOD CHOLESTEROL INCREASED

REACTIONS (5)
  - Blood glucose increased [Recovering/Resolving]
  - Influenza [Recovering/Resolving]
  - Blood pressure increased [Recovering/Resolving]
  - Dyspnoea [Not Recovered/Not Resolved]
  - Pain [Not Recovered/Not Resolved]
